FAERS Safety Report 7132102-3 (Version None)
Quarter: 2010Q4

REPORT INFORMATION
  Report Type: 
  Country: None (occurrence: None)
  Receive Date: 20101130
  Receipt Date: 20101130
  Transmission Date: 20110411
  Serious: No
  Sender: FDA-Public Use
  Company Number: None

PATIENT
  Age: 88 Year
  Sex: Male
  Weight: 60.782 kg

DRUGS (1)
  1. TRILEPTAL [Suspect]
     Indication: PAIN MANAGEMENT
     Dosage: 300 MG 1/2 TABLET QHS PO
     Route: 048
     Dates: start: 20101027, end: 20101030

REACTIONS (6)
  - ATAXIA [None]
  - DEPRESSED LEVEL OF CONSCIOUSNESS [None]
  - FALL [None]
  - PERONEAL NERVE PALSY [None]
  - THIRST [None]
  - TREMOR [None]
